FAERS Safety Report 6972196 (Version 2)
Quarter: 2012Q4

REPORT INFORMATION
  Report Type: Spontaneous
  Country: IL (occurrence: None)
  Receive Date: 20090409
  Receipt Date: 20121219
  Transmission Date: 20130627
  Serious: Yes (Death)
  Sender: FDA-Public Use
  Company Number: 2009EU001399

PATIENT
  Age: 60 Year
  Sex: Female

DRUGS (11)
  1. TACROLIMUS [Suspect]
     Indication: RENAL TRANSPLANT
     Dosage: 5 MG, BID, ORAL, 6 MIG, BID
     Route: 048
     Dates: start: 20031114, end: 20031118
  2. TACROLIMUS [Suspect]
     Indication: RENAL TRANSPLANT
  3. MYCOPHENOLATE MOFETIL [Suspect]
     Indication: PROPHYLAXIS AGAINST RENAL TRANSPLANT REJECTION
     Dosage: 1000 MG, BID, ORAL
     Route: 048
     Dates: start: 20031101
  4. PREDNISONE [Suspect]
     Indication: PROPHYLAXIS AGAINST RENAL TRANSPLANT REJECTION
     Dosage: 20 MG, UID/QD, ORAL
     Route: 048
     Dates: start: 20031102
  5. CICLOSPORIN (CICLOSPORIN) [Suspect]
     Indication: PROPHYLAXIS AGAINST RENAL TRANSPLANT REJECTION
     Route: 048
     Dates: start: 20031102, end: 20031109
  6. CICLOSPORIN (CICLOSPORIN) [Suspect]
     Indication: PROPHYLAXIS AGAINST RENAL TRANSPLANT REJECTION
     Route: 048
     Dates: start: 20031110, end: 20031115
  7. SOLU-MEDROL (METHYLPREDNISOLONE SODIUM SUCCINATE) [Suspect]
     Indication: PROPHYLAXIS AGAINST RENAL TRANSPLANT REJECTION
     Route: 042
     Dates: start: 20031101, end: 20031102
  8. SOLU-MEDROL (METHYLPREDNISOLONE SODIUM SUCCINATE) [Suspect]
     Indication: PROPHYLAXIS AGAINST RENAL TRANSPLANT REJECTION
     Route: 042
     Dates: start: 20031107, end: 20031108
  9. SOLU-MEDROL (METHYLPREDNISOLONE SODIUM SUCCINATE) [Suspect]
     Indication: PROPHYLAXIS AGAINST RENAL TRANSPLANT REJECTION
     Route: 042
     Dates: start: 20031109, end: 20031112
  10. INSULIN (INSULIN) [Concomitant]
  11. HEPARIN (HEPARIN) [Concomitant]

REACTIONS (1)
  - Death [None]
